FAERS Safety Report 15688599 (Version 4)
Quarter: 2019Q1

REPORT INFORMATION
  Report Type: Spontaneous
  Country: DE (occurrence: DE)
  Receive Date: 20181205
  Receipt Date: 20190111
  Transmission Date: 20190417
  Serious: Yes (Other)
  Sender: FDA-Public Use
  Company Number: DE-ACCORD-094849

PATIENT
  Sex: Male
  Weight: 80 kg

DRUGS (5)
  1. PANITUMUMAB [Suspect]
     Active Substance: PANITUMUMAB
     Indication: ADENOCARCINOMA OF COLON
     Dosage: LAST ADMINISTRATION BEFORE AE ONSET: 01-AUG-2017
     Route: 042
     Dates: start: 20170131, end: 20170801
  2. IRINOTECAN [Suspect]
     Active Substance: IRINOTECAN
     Indication: ADENOCARCINOMA OF COLON
     Dosage: LAST ADMINISTRATION BEFORE AE ONSET: 01-AUG-2017
     Route: 042
     Dates: start: 20170103, end: 20170801
  3. ONCOFOLIC [Suspect]
     Active Substance: FOLATE SODIUM
     Indication: ADENOCARCINOMA OF COLON
     Dosage: LAST ADMINISTRATION BEFORE AE ONSET: 01-AUG-2017, 760 MG, UNK
     Route: 042
     Dates: start: 20170103
  4. PALONOSETRON. [Concomitant]
     Active Substance: PALONOSETRON HYDROCHLORIDE
     Indication: PROPHYLAXIS
     Dosage: 8 HOURS AND 40 MINUTES PRIOR TO CHEMOTHERAPY, 250 MUG, UNK
  5. FLUOROURACIL. [Suspect]
     Active Substance: FLUOROURACIL
     Indication: ADENOCARCINOMA OF COLON
     Dosage: LAST ADMINISTRATION BEFORE AE ONSET: 01-AUG-2017, 5940 MG, UNK
     Route: 042
     Dates: start: 20170103, end: 20170801

REACTIONS (1)
  - Skin infection [Recovered/Resolved]

NARRATIVE: CASE EVENT DATE: 20170816
